FAERS Safety Report 10506150 (Version 2)
Quarter: 2015Q2

REPORT INFORMATION
  Report Type: Spontaneous
  Country: BR (occurrence: BR)
  Receive Date: 20141009
  Receipt Date: 20150518
  Transmission Date: 20150821
  Serious: Yes (Hospitalization, Disabling)
  Sender: FDA-Public Use
  Company Number: BR-ROCHE-1470808

PATIENT
  Sex: Female
  Weight: 65 kg

DRUGS (5)
  1. RIVOTRIL [Suspect]
     Active Substance: CLONAZEPAM
     Indication: INSOMNIA
     Route: 065
     Dates: start: 201409
  2. RIVOTRIL [Suspect]
     Active Substance: CLONAZEPAM
     Dosage: AT NIGHT
     Route: 065
     Dates: start: 2002
  3. ARADOIS [Concomitant]
     Active Substance: LOSARTAN POTASSIUM
     Indication: HYPERTENSION
     Dosage: DAILY (IN THE MORNING)
     Route: 065
     Dates: start: 201403
  4. LACRIFILM [Concomitant]
     Indication: DRY EYE
     Route: 065
     Dates: start: 201403
  5. RIVOTRIL [Suspect]
     Active Substance: CLONAZEPAM
     Indication: INSOMNIA
     Route: 065
     Dates: start: 2002, end: 2012

REACTIONS (7)
  - Deafness [Unknown]
  - Swelling [Not Recovered/Not Resolved]
  - Drug ineffective [Unknown]
  - Blindness [Recovered/Resolved]
  - Weight increased [Unknown]
  - Anosmia [Recovered/Resolved]
  - Ageusia [Recovered/Resolved]
